FAERS Safety Report 7891205 (Version 1)
Quarter: 2020Q3

REPORT INFORMATION
  Report Type: Report from Study
  Country: US (occurrence: US)
  Receive Date: 20110408
  Receipt Date: 20110408
  Transmission Date: 20201104
  Serious: Yes (Hospitalization)
  Sender: FDA-Public Use
  Company Number: US-ROCHE-768359

PATIENT
  Age: 64 Year
  Sex: Female
  Weight: 81.6 kg

DRUGS (1)
  1. IBANDRONIC ACID. [Suspect]
     Active Substance: IBANDRONIC ACID
     Dosage: CUMULATIVE DOSE 30750 MG; LAST DOSE  ADMINISTERED? 15 MARCH 2011
     Route: 048
     Dates: start: 20090713

REACTIONS (3)
  - Left ventricular dysfunction [Unknown]
  - Cardiac failure [Recovered/Resolved with Sequelae]
  - Pulmonary hypertension [Recovered/Resolved with Sequelae]

NARRATIVE: CASE EVENT DATE: 20110225
